FAERS Safety Report 9740505 (Version 1)
Quarter: 2013Q4

REPORT INFORMATION
  Report Type: Spontaneous
  Country: US (occurrence: US)
  Receive Date: 20131209
  Receipt Date: 20131209
  Transmission Date: 20140711
  Serious: No
  Sender: FDA-Public Use
  Company Number: US-BIOGENIDEC-2013BI095045

PATIENT
  Sex: Female

DRUGS (10)
  1. TECFIDERA [Suspect]
     Indication: MULTIPLE SCLEROSIS
     Route: 048
     Dates: start: 20130517, end: 20130925
  2. PROPRANOLOL [Concomitant]
  3. WELLBUTRIN [Concomitant]
  4. ATIVAN [Concomitant]
  5. AMPYRA [Concomitant]
  6. NO MSS NX DOXYCYCLINE [Concomitant]
  7. VITAMIN D [Concomitant]
  8. NEURONTIN [Concomitant]
  9. BACLOFEN [Concomitant]
  10. VALTREX [Concomitant]

REACTIONS (1)
  - Drug ineffective [Unknown]
